FAERS Safety Report 11131660 (Version 2)
Quarter: 2018Q1

REPORT INFORMATION
  Report Type: Spontaneous
  Country: CA (occurrence: CA)
  Receive Date: 20150522
  Receipt Date: 20180208
  Transmission Date: 20180508
  Serious: Yes (Other)
  Sender: FDA-Public Use
  Company Number: CA-ROCHE-1582338

PATIENT
  Age: 61 Year
  Sex: Female

DRUGS (10)
  1. VENTOLINE [Concomitant]
     Active Substance: ALBUTEROL
  2. NOVO-HYDRAZIDE [Concomitant]
     Active Substance: HYDROCHLOROTHIAZIDE
  3. EFFEXOR [Concomitant]
     Active Substance: VENLAFAXINE HYDROCHLORIDE
  4. UNIPHYL [Concomitant]
     Active Substance: THEOPHYLLINE ANHYDROUS
  5. XOLAIR [Suspect]
     Active Substance: OMALIZUMAB
     Indication: ASTHMA
     Dosage: VIAL
     Route: 058
     Dates: start: 20150507
  6. SEREVENT DISKUS [Concomitant]
     Active Substance: SALMETEROL XINAFOATE
  7. FLOVENT [Concomitant]
     Active Substance: FLUTICASONE PROPIONATE
  8. AVAPRO [Concomitant]
     Active Substance: IRBESARTAN
  9. NORVASC [Concomitant]
     Active Substance: AMLODIPINE BESYLATE
  10. REACTINE (CANADA) [Concomitant]
     Active Substance: CETIRIZINE HYDROCHLORIDE
     Indication: PREMEDICATION
     Route: 065
     Dates: start: 20150507

REACTIONS (10)
  - Emotional disorder [Unknown]
  - Palpitations [Unknown]
  - Muscle spasms [Recovered/Resolved]
  - Pruritus [Unknown]
  - Hypertension [Unknown]
  - Injection site warmth [Unknown]
  - Urticaria [Unknown]
  - Injection site erythema [Unknown]
  - Asthma [Unknown]
  - Fatigue [Unknown]

NARRATIVE: CASE EVENT DATE: 20150507
